FAERS Safety Report 18104628 (Version 3)
Quarter: 2020Q3

REPORT INFORMATION
  Report Type: Spontaneous
  Country: US (occurrence: US)
  Receive Date: 20200803
  Receipt Date: 20200912
  Transmission Date: 20201103
  Serious: No
  Sender: FDA-Public Use
  Company Number: US-009507513-2007USA008800

PATIENT
  Age: 73 Year
  Sex: Female

DRUGS (4)
  1. PROVENTIL [Suspect]
     Active Substance: ALBUTEROL
     Dosage: 2 INHALATIONS, Q4H (EVERY 4 HOURS)
     Dates: start: 20200721
  2. PREDNISONE. [Concomitant]
     Active Substance: PREDNISONE
     Dosage: UNK
  3. PROVENTIL [Suspect]
     Active Substance: ALBUTEROL
     Indication: ASTHMA
     Dosage: 2 INHALATIONS, Q4H (EVERY 4 HOURS)
     Dates: start: 1975
  4. PROVENTIL [Suspect]
     Active Substance: ALBUTEROL
     Dosage: 2 INHALATIONS, Q4H (EVERY 4 HOURS)
     Dates: start: 2020

REACTIONS (11)
  - Product quality issue [Unknown]
  - Product odour abnormal [Unknown]
  - Palpitations [Recovered/Resolved]
  - Product storage error [Unknown]
  - Product contamination [Unknown]
  - Wrong technique in product usage process [Unknown]
  - Therapeutic response decreased [Unknown]
  - Poor quality device used [Unknown]
  - Poor quality device used [Unknown]
  - Intentional product misuse [Unknown]
  - Product quality issue [Unknown]

NARRATIVE: CASE EVENT DATE: 2020
